FAERS Safety Report 9819610 (Version 2)
Quarter: 2014Q1

REPORT INFORMATION
  Report Type: Report from Study
  Country: US (occurrence: US)
  Receive Date: 20140115
  Receipt Date: 20140127
  Transmission Date: 20141002
  Serious: Yes (Other)
  Sender: FDA-Public Use
  Company Number: US-ACTELION-A-US2014-93411

PATIENT
  Age: 54 Year
  Sex: Male

DRUGS (2)
  1. VELETRI [Suspect]
     Indication: COR PULMONALE CHRONIC
     Dosage: 22 NG/KG, PER MIN
     Route: 041
     Dates: start: 20121109
  2. TRACLEER [Suspect]
     Indication: COR PULMONALE CHRONIC
     Route: 048

REACTIONS (1)
  - Lung transplant [Unknown]
